FAERS Safety Report 9648591 (Version 1)
Quarter: 2013Q4

REPORT INFORMATION
  Report Type: Spontaneous
  Country: US (occurrence: None)
  Receive Date: 20131025
  Receipt Date: 20131025
  Transmission Date: 20140711
  Serious: No
  Sender: FDA-Public Use
  Company Number: None

PATIENT
  Age: 43 Year
  Sex: Female
  Weight: 63.5 kg

DRUGS (1)
  1. MIRENA BAYER [Suspect]

REACTIONS (5)
  - Fungal infection [None]
  - Skin odour abnormal [None]
  - Quality of life decreased [None]
  - Partner stress [None]
  - Discomfort [None]
